FAERS Safety Report 17689138 (Version 1)
Quarter: 2020Q2

REPORT INFORMATION
  Report Type: Spontaneous
  Country: US (occurrence: US)
  Receive Date: 20200421
  Receipt Date: 20200421
  Transmission Date: 20200714
  Serious: No
  Sender: FDA-Public Use
  Company Number: US-DUCHESNAY-2019US000041

PATIENT
  Age: 59 Year
  Sex: Female

DRUGS (1)
  1. OSPHENA [Suspect]
     Active Substance: OSPEMIFENE
     Indication: DYSPAREUNIA
     Dosage: UNK
     Route: 048
     Dates: start: 2018, end: 201911

REACTIONS (2)
  - Drug ineffective [Unknown]
  - Female orgasmic disorder [Unknown]

NARRATIVE: CASE EVENT DATE: 201910
